FAERS Safety Report 17674875 (Version 1)
Quarter: 2020Q2

REPORT INFORMATION
  Report Type: Spontaneous
  Country: US (occurrence: US)
  Receive Date: 20200416
  Receipt Date: 20200416
  Transmission Date: 20200714
  Serious: Yes (Other)
  Sender: FDA-Public Use
  Company Number: US-ALEMBIC PHARMACUETICALS LIMITED-2020SCAL000150

PATIENT

DRUGS (2)
  1. RISPERIDONE. [Suspect]
     Active Substance: RISPERIDONE
     Indication: BIPOLAR DISORDER
     Dosage: UNK
  2. LITHIUM CARBONATE. [Suspect]
     Active Substance: LITHIUM CARBONATE
     Indication: BIPOLAR DISORDER
     Dosage: UNK

REACTIONS (12)
  - Electrocardiogram QT prolonged [Unknown]
  - Toxicity to various agents [Recovering/Resolving]
  - Electrocardiogram ST segment abnormal [Unknown]
  - Antipsychotic drug level increased [Recovering/Resolving]
  - Tachyarrhythmia [Unknown]
  - Supraventricular tachycardia [Unknown]
  - Cardiotoxicity [Unknown]
  - Troponin increased [Recovering/Resolving]
  - Vomiting [Unknown]
  - Bundle branch block right [Recovered/Resolved]
  - Electrocardiogram T wave abnormal [Unknown]
  - Intentional overdose [Unknown]
